FAERS Safety Report 12348849 (Version 1)
Quarter: 2016Q2

REPORT INFORMATION
  Report Type: Spontaneous
  Country: None (occurrence: US)
  Receive Date: 20160509
  Receipt Date: 20160509
  Transmission Date: 20160815
  Serious: Yes (Hospitalization)
  Sender: FDA-Public Use
  Company Number: US-IPCA LABORATORIES LIMITED-IPC201604-000408

PATIENT
  Age: 35 Year
  Sex: Female

DRUGS (2)
  1. PREDNISONE. [Suspect]
     Active Substance: PREDNISONE
  2. FUROSEMIDE. [Suspect]
     Active Substance: FUROSEMIDE

REACTIONS (3)
  - Supraventricular tachycardia [Unknown]
  - Supraventricular extrasystoles [Unknown]
  - Hypokalaemia [Unknown]
